FAERS Safety Report 7426015-7 (Version None)
Quarter: 2011Q2

REPORT INFORMATION
  Report Type: 
  Country: None (occurrence: None)
  Receive Date: 20110420
  Receipt Date: 20110322
  Transmission Date: 20111010
  Serious: No
  Sender: FDA-Public Use
  Company Number: US-MYLANLABS-2011S1005750

PATIENT
  Age: 59 Year
  Sex: Female

DRUGS (1)
  1. PRAMIPEXOLE DIHYCHLLORIDE [Suspect]
     Route: 048
     Dates: start: 20110224

REACTIONS (1)
  - DRUG EFFECT DECREASED [None]
